FAERS Safety Report 8453141-6 (Version None)
Quarter: 2012Q2

REPORT INFORMATION
  Report Type: 
  Country: None (occurrence: None)
  Receive Date: 20120620
  Receipt Date: 20120510
  Transmission Date: 20120825
  Serious: No
  Sender: FDA-Public Use
  Company Number: US-VERTEX PHARMACEUTICALS INC.-AE-2012-006726

PATIENT
  Sex: Female
  Weight: 69.462 kg

DRUGS (8)
  1. INCIVEK [Suspect]
     Indication: HEPATITIS C
     Route: 048
     Dates: start: 20120101
  2. FOLIC ACID [Concomitant]
     Route: 048
  3. VITAMIN D [Concomitant]
     Route: 048
  4. RIBASPHERE [Concomitant]
     Indication: HEPATITIS C
     Route: 048
     Dates: start: 20120101
  5. PEGASYS [Concomitant]
     Indication: HEPATITIS C
     Route: 058
     Dates: start: 20120101
  6. HYDROCHLOROTHIAZIDE [Concomitant]
     Route: 048
  7. ASPIRIN [Concomitant]
     Route: 048
  8. LISINOPRIL [Concomitant]
     Route: 048

REACTIONS (1)
  - HAEMOGLOBIN DECREASED [None]
